FAERS Safety Report 9468989 (Version 1)
Quarter: 2013Q3

REPORT INFORMATION
  Report Type: Spontaneous
  Country: CA (occurrence: None)
  Receive Date: 20130815
  Receipt Date: 20130815
  Transmission Date: 20140515
  Serious: Yes (Death)
  Sender: FDA-Public Use
  Company Number: FK201303177

PATIENT
  Sex: 0

DRUGS (1)
  1. HEPARIN (HEPARIN) [Suspect]
     Indication: THROMBOSIS

REACTIONS (1)
  - Haemothorax [None]
